FAERS Safety Report 18789556 (Version 1)
Quarter: 2021Q1

REPORT INFORMATION
  Report Type: Other
  Country: ES (occurrence: ES)
  Receive Date: 20210125
  Receipt Date: 20210125
  Transmission Date: 20210419
  Serious: Yes (Death, Other)
  Sender: FDA-Public Use
  Company Number: ES-VALIDUS PHARMACEUTICALS LLC-ES-2021VAL000044

PATIENT
  Age: 76 Year
  Sex: Male
  Weight: 83 kg

DRUGS (5)
  1. HYDROXYCHLOROQUINE                 /00072603/ [Suspect]
     Active Substance: HYDROXYCHLOROQUINE SULFATE
     Indication: COVID-19
     Dosage: 400 MG EVERY 12 H 1ST DAY, THEN 200 MG EVERY 12 H
     Route: 048
     Dates: start: 20200323, end: 20200401
  2. HYDROXYCHLOROQUINE                 /00072603/ [Suspect]
     Active Substance: HYDROXYCHLOROQUINE SULFATE
     Dosage: 200 MG, BID
     Route: 048
  3. FUROSEMIDE. [Suspect]
     Active Substance: FUROSEMIDE
     Indication: POLYURIA
     Dosage: UNK, DOSE OF FUROSEMIDE PER DAY: 27/3: 26 MG 28/3: 116 MG, 29/3: 62 MG, 30/3: 96 MG, 31/3: 20 MG
     Route: 042
     Dates: start: 20200328, end: 20200331
  4. LOPINAVIR/RITONAVIR [Suspect]
     Active Substance: LOPINAVIR\RITONAVIR
     Indication: COVID-19
     Dosage: 400 MG, Q12H, 400 MG EVERY 12 H
     Route: 048
     Dates: start: 20200323, end: 20200403
  5. TOCILIZUMAB. [Suspect]
     Active Substance: TOCILIZUMAB
     Indication: COVID-19
     Dosage: 600 MG, TOTAL
     Route: 042
     Dates: start: 20200324, end: 20200325

REACTIONS (3)
  - Pancreatitis acute [Fatal]
  - Acute kidney injury [Unknown]
  - Drug interaction [Unknown]

NARRATIVE: CASE EVENT DATE: 202004
